FAERS Safety Report 5501036-X (Version None)
Quarter: 2007Q4

REPORT INFORMATION
  Report Type: 
  Country: None (occurrence: None)
  Receive Date: 20071029
  Receipt Date: 20071017
  Transmission Date: 20080405
  Serious: Yes (Other)
  Sender: FDA-Public Use
  Company Number: CA-SHR-CA-2007-026974

PATIENT
  Age: 48 Year
  Sex: Female
  Weight: 41 kg

DRUGS (7)
  1. BETASERON [Suspect]
     Dosage: 8 MIU, EVERY 2D
     Route: 058
     Dates: start: 19980716
  2. AMERGE [Concomitant]
     Indication: HEADACHE
     Dosage: 1 TAB(S), UNK
     Route: 048
  3. EFFEXOR [Concomitant]
     Indication: ANTIDEPRESSANT THERAPY
     Dosage: 300 MG, UNK
     Route: 048
  4. METOPROLOL [Concomitant]
     Indication: HYPERTENSION
     Dosage: 25 MG, UNK
     Route: 048
  5. TRAZODONE HCL [Concomitant]
     Indication: ANTIDEPRESSANT THERAPY
     Dosage: 100 MG, UNK
     Route: 048
  6. TYLENOL (CAPLET) [Concomitant]
     Indication: PAIN
     Dosage: 1-2 TAB(S), UNK
     Route: 048
  7. WELLBUTRIN [Concomitant]
     Indication: ANTIDEPRESSANT THERAPY
     Dosage: 150 MG, UNK
     Route: 048

REACTIONS (7)
  - FATIGUE [None]
  - GAMMA-GLUTAMYLTRANSFERASE INCREASED [None]
  - HEPATIC ENZYME INCREASED [None]
  - HEPATIC STEATOSIS [None]
  - HYSTERECTOMY [None]
  - ROAD TRAFFIC ACCIDENT [None]
  - WEIGHT DECREASED [None]
